FAERS Safety Report 6355757-X (Version None)
Quarter: 2009Q3

REPORT INFORMATION
  Report Type: 
  Country: None (occurrence: None)
  Receive Date: 20090911
  Receipt Date: 20090911
  Transmission Date: 20100115
  Serious: Yes (Life-Threatening, Hospitalization, Disabling)
  Sender: FDA-Public Use
  Company Number: None

PATIENT
  Age: 59 Year
  Sex: Female
  Weight: 72.5755 kg

DRUGS (2)
  1. RECLAST [Suspect]
     Indication: OSTEOPOROSIS
     Dosage: YEARLY IV
     Route: 042
     Dates: start: 20090713
  2. ACTONEL [Suspect]
     Dates: start: 20090501, end: 20090601

REACTIONS (5)
  - ALVEOLAR OSTEITIS [None]
  - IMPAIRED HEALING [None]
  - OSTEOPOROSIS [None]
  - SPLINTER [None]
  - WISDOM TEETH REMOVAL [None]
